FAERS Safety Report 23307678 (Version 1)
Quarter: 2023Q4

REPORT INFORMATION
  Report Type: Spontaneous
  Country: CN (occurrence: CN)
  Receive Date: 20231218
  Receipt Date: 20231218
  Transmission Date: 20240110
  Serious: Yes (Death)
  Sender: FDA-Public Use
  Company Number: CN-PFIZER INC-PV202300200280

PATIENT
  Age: 53 Year
  Sex: Female

DRUGS (7)
  1. VORICONAZOLE [Suspect]
     Active Substance: VORICONAZOLE
     Indication: Aspergillus infection
     Dosage: 200 MG, Q12 H (DOUBLING THE DOSE ON THE FIRST DAY)
     Route: 041
     Dates: start: 20170327, end: 20170327
  2. VORICONAZOLE [Suspect]
     Active Substance: VORICONAZOLE
     Dosage: 200 MG, Q12 H
     Route: 041
     Dates: start: 20170328
  3. VORICONAZOLE [Suspect]
     Active Substance: VORICONAZOLE
     Indication: Antifungal treatment
     Dosage: 200 MG, Q12 H
     Route: 048
     Dates: start: 20170421
  4. INSULIN HUMAN [Concomitant]
     Active Substance: INSULIN HUMAN
     Dosage: 10 IU, Q6H
     Route: 058
     Dates: start: 20170327
  5. MANNITOL [Concomitant]
     Active Substance: MANNITOL
     Dosage: 150 ML, QD
     Route: 041
     Dates: start: 20170327
  6. HERBALS\PANAX NOTOGINSENG ROOT EXTRACT [Concomitant]
     Active Substance: HERBALS\PANAX NOTOGINSENG ROOT EXTRACT
     Dosage: 0.3 G, QD
     Route: 041
     Dates: start: 20170327
  7. HEPARIN CALCIUM [Concomitant]
     Active Substance: HEPARIN CALCIUM
     Dosage: 4100 IU, Q12 H
     Route: 058
     Dates: start: 20170327

REACTIONS (1)
  - Drug-induced liver injury [Fatal]

NARRATIVE: CASE EVENT DATE: 20170408
